FAERS Safety Report 8984228 (Version 1)
Quarter: 2012Q4

REPORT INFORMATION
  Report Type: 
  Country: FR (occurrence: FR)
  Receive Date: 20121226
  Receipt Date: 20121226
  Transmission Date: 20130627
  Serious: Yes (Hospitalization, Other)
  Sender: FDA-Public Use
  Company Number: PHHY2012FR118047

PATIENT
  Age: 60 Year
  Sex: Male

DRUGS (8)
  1. TASIGNA [Suspect]
     Indication: CHRONIC MYELOID LEUKAEMIA
     Dosage: 200 mg, QD
     Route: 048
     Dates: start: 20120402, end: 20120731
  2. TASIGNA [Suspect]
     Dosage: 200 mg, QD
     Route: 048
     Dates: start: 201209, end: 20120920
  3. OMACOR [Concomitant]
  4. ISOPTINE [Concomitant]
     Dosage: 120 mg, UNK
  5. TRIATEC [Concomitant]
     Dosage: 10 mg, UNK
  6. LANZOR [Concomitant]
  7. KARDEGIC [Concomitant]
     Dosage: 75 mg, UNK
  8. MAGNE B6 [Concomitant]

REACTIONS (8)
  - Acute coronary syndrome [Recovering/Resolving]
  - Supraventricular extrasystoles [Unknown]
  - Electrocardiogram ST segment depression [Unknown]
  - Chest pain [Unknown]
  - Mitral valve prolapse [Unknown]
  - Left atrial dilatation [Unknown]
  - Mitral valve incompetence [Unknown]
  - Blood cholesterol increased [Unknown]
